FAERS Safety Report 7103273-X (Version None)
Quarter: 2010Q4

REPORT INFORMATION
  Report Type: 
  Country: None (occurrence: None)
  Receive Date: 20101115
  Receipt Date: 20091223
  Transmission Date: 20110411
  Serious: No
  Sender: FDA-Public Use
  Company Number: US-KINGPHARMUSA00001-K200901625

PATIENT
  Sex: Female
  Weight: 48.073 kg

DRUGS (3)
  1. LEVOXYL [Suspect]
     Indication: HYPOTHYROIDISM
     Dosage: 75 MCG, QAM
     Route: 048
  2. PREMPRO [Concomitant]
     Indication: HOT FLUSH
     Dosage: 0.3 MG, QOD
     Dates: start: 20050101
  3. PREMPRO [Concomitant]
     Dosage: 0.45 MG, QOD

REACTIONS (12)
  - ALOPECIA [None]
  - DRUG INTOLERANCE [None]
  - FEELING ABNORMAL [None]
  - FEELING JITTERY [None]
  - HYPERTHYROIDISM [None]
  - MALAISE [None]
  - MIDDLE INSOMNIA [None]
  - MOBILITY DECREASED [None]
  - MYALGIA [None]
  - ONYCHOCLASIS [None]
  - PAIN [None]
  - PARAESTHESIA [None]
